FAERS Safety Report 18540568 (Version 1)
Quarter: 2020Q4

REPORT INFORMATION
  Report Type: Spontaneous
  Country: US (occurrence: US)
  Receive Date: 20201124
  Receipt Date: 20201124
  Transmission Date: 20210114
  Serious: Yes (Hospitalization)
  Sender: FDA-Public Use
  Company Number: US-JUBILANT CADISTA PHARMACEUTICALS-2020JUB00333

PATIENT
  Age: 29 Year
  Sex: Male
  Weight: 85 kg

DRUGS (35)
  1. PREDNISONE. [Suspect]
     Active Substance: PREDNISONE
     Dosage: 5 MG, 1X/DAY
     Route: 048
  2. NYSTATIN. [Concomitant]
     Active Substance: NYSTATIN
  3. PREDNISONE IV [Suspect]
     Active Substance: PREDNISONE
     Indication: IMMUNOSUPPRESSION
     Dosage: 250 MG, 1X/DAY
     Route: 042
     Dates: start: 20190120, end: 20190121
  4. PREDNISONE IV [Suspect]
     Active Substance: PREDNISONE
     Dosage: 30 MG, 1X/DAY
     Route: 042
     Dates: start: 20190126
  5. VALGANCICLOVIR. [Concomitant]
     Active Substance: VALGANCICLOVIR
  6. ASKP1240 [Suspect]
     Active Substance: BLESELUMAB
     Indication: IMMUNOSUPPRESSION
     Dosage: 200 MG, 1X/DAY
     Route: 042
     Dates: start: 20190116, end: 20190116
  7. TACROLIUMS [Suspect]
     Active Substance: TACROLIMUS
     Indication: IMMUNOSUPPRESSION
     Dosage: 5 MG, 2X/DAY
     Route: 048
     Dates: start: 20190116, end: 20190117
  8. TACROLIUMS [Suspect]
     Active Substance: TACROLIMUS
     Dosage: 7 MG, 2X/DAY
     Route: 048
     Dates: start: 20190120, end: 20190120
  9. BASILIXIMAB [Suspect]
     Active Substance: BASILIXIMAB
     Indication: IMMUNOSUPPRESSION
     Dosage: 200 MG, 1X/DAY
     Route: 042
     Dates: start: 20190116, end: 20190116
  10. METHYLPREDNISOLONE. [Suspect]
     Active Substance: METHYLPREDNISOLONE
     Dosage: 60 MG, 1X/DAY
     Route: 042
     Dates: start: 20190119, end: 20190119
  11. SODIUM BICARBONATE. [Concomitant]
     Active Substance: SODIUM BICARBONATE
  12. FISH OIL OMEGA 3 [Concomitant]
     Active Substance: FISH OIL
  13. FUROSEMIDE. [Concomitant]
     Active Substance: FUROSEMIDE
  14. COUMADIN [Concomitant]
     Active Substance: WARFARIN SODIUM
  15. PREDNISONE. [Suspect]
     Active Substance: PREDNISONE
     Indication: IMMUNOSUPPRESSION
     Dosage: 30 MG, 1X/DAY
     Route: 048
     Dates: start: 20190122, end: 201901
  16. TACROLIUMS [Suspect]
     Active Substance: TACROLIMUS
     Dosage: 5 MG, 1X/DAY
     Route: 048
     Dates: start: 20190226
  17. METHYLPREDNISOLONE. [Suspect]
     Active Substance: METHYLPREDNISOLONE
     Dosage: 250 MG, 1X/DAY
     Route: 042
     Dates: start: 20190117, end: 20190117
  18. ATORVASTATIN [Concomitant]
     Active Substance: ATORVASTATIN
  19. CELLCEPT [Concomitant]
     Active Substance: MYCOPHENOLATE MOFETIL\MYCOPHENOLATE MOFETIL HYDROCHLORIDE
     Dosage: UNK
     Dates: start: 20190122
  20. LABETALOL [Concomitant]
     Active Substance: LABETALOL\LABETALOL HYDROCHLORIDE
  21. VIT D3 (COLECALCIFEROL) [Concomitant]
  22. METHYLPREDNISOLONE. [Suspect]
     Active Substance: METHYLPREDNISOLONE
     Indication: IMMUNOSUPPRESSION
     Dosage: 500 MG, 1X/DAY
     Route: 042
     Dates: start: 20190116, end: 20190116
  23. METHYLPREDNISOLONE. [Suspect]
     Active Substance: METHYLPREDNISOLONE
     Dosage: 125 MG, 1X/DAY
     Route: 042
     Dates: start: 20190118, end: 20190118
  24. METHYLPREDNISOLONE. [Suspect]
     Active Substance: METHYLPREDNISOLONE
     Dosage: 250 MG, 1X/DAY
     Route: 042
  25. CALCIUM CARBONATE. [Concomitant]
     Active Substance: CALCIUM CARBONATE
  26. TACROLIUMS [Suspect]
     Active Substance: TACROLIMUS
     Dosage: 4 MG, 2X/DAY
     Route: 048
     Dates: start: 20190209, end: 20190218
  27. CEFAZOLIN [Concomitant]
     Active Substance: CEFAZOLIN
  28. MG (MAGNESIUM SULFATE) [Concomitant]
  29. FAMOTIDINE. [Concomitant]
     Active Substance: FAMOTIDINE
  30. PREDNISONE. [Suspect]
     Active Substance: PREDNISONE
     Dosage: 7.5 MG, 1X/DAY
     Route: 048
     Dates: start: 20190308, end: 2019
  31. TACROLIUMS [Suspect]
     Active Substance: TACROLIMUS
     Dosage: 8 MG, 2X/DAY
     Route: 048
     Dates: start: 20190124, end: 20190128
  32. BASILIXIMAB [Suspect]
     Active Substance: BASILIXIMAB
     Dosage: 20 MG, 1X/DAY
     Route: 042
     Dates: start: 20190119, end: 20190119
  33. PEPCID [Concomitant]
     Active Substance: FAMOTIDINE
  34. RENVELA [Concomitant]
     Active Substance: SEVELAMER CARBONATE
  35. DARBEPOETIN ALFA [Concomitant]
     Active Substance: DARBEPOETIN ALFA

REACTIONS (4)
  - Staphylococcal bacteraemia [Recovered/Resolved]
  - Orchitis [Recovered/Resolved]
  - Kidney transplant rejection [Recovered/Resolved]
  - Bacteriuria [Recovered/Resolved]

NARRATIVE: CASE EVENT DATE: 20190125
